FAERS Safety Report 10281691 (Version 3)
Quarter: 2014Q3

REPORT INFORMATION
  Report Type: Spontaneous
  Country: JP (occurrence: JP)
  Receive Date: 20140707
  Receipt Date: 20140930
  Transmission Date: 20150326
  Serious: Yes (Hospitalization, Other)
  Sender: FDA-Public Use
  Company Number: JP-PFIZER INC-2014189119

PATIENT
  Age: 45 Year
  Sex: Female

DRUGS (2)
  1. CELECOX [Suspect]
     Active Substance: CELECOXIB
     Indication: RHEUMATOID ARTHRITIS
     Dosage: 100 MG, 1X/DAY
     Route: 048
     Dates: end: 20140605
  2. PLANOVAR [Suspect]
     Active Substance: ETHINYL ESTRADIOL\NORGESTREL
     Dosage: UNK
     Route: 048
     Dates: start: 20140521, end: 20140531

REACTIONS (2)
  - Intentional product misuse [Unknown]
  - Cerebral infarction [Recovering/Resolving]

NARRATIVE: CASE EVENT DATE: 20140605
